FAERS Safety Report 15858809 (Version 2)
Quarter: 2019Q1

REPORT INFORMATION
  Report Type: Spontaneous
  Country: US (occurrence: US)
  Receive Date: 20190123
  Receipt Date: 20190228
  Transmission Date: 20190417
  Serious: Yes (Disabling, Other)
  Sender: FDA-Public Use
  Company Number: US-GILEAD-2019-0386362

PATIENT
  Age: 19 Year
  Sex: Male
  Weight: 72.56 kg

DRUGS (1)
  1. TRUVADA [Suspect]
     Active Substance: EMTRICITABINE\TENOFOVIR DISOPROXIL FUMARATE
     Indication: PROPHYLAXIS AGAINST HIV INFECTION
     Dosage: 200/300MG, QD
     Route: 048
     Dates: start: 20180919, end: 20181220

REACTIONS (5)
  - Acute HIV infection [Not Recovered/Not Resolved]
  - Treatment noncompliance [Recovered/Resolved]
  - Product dose omission [Recovered/Resolved]
  - Gene mutation identification test positive [Unknown]
  - Drug ineffective [Unknown]

NARRATIVE: CASE EVENT DATE: 20181220
